FAERS Safety Report 9910146 (Version 1)
Quarter: 2014Q1

REPORT INFORMATION
  Report Type: Spontaneous
  Country: US (occurrence: None)
  Receive Date: 20140218
  Receipt Date: 20140218
  Transmission Date: 20141002
  Serious: Yes (Hospitalization)
  Sender: FDA-Public Use
  Company Number: None

PATIENT
  Age: 40 Year
  Sex: Male
  Weight: 111.13 kg

DRUGS (1)
  1. TESTOSTERONE CYPIONATE [Suspect]
     Indication: TESTICULAR FAILURE
     Dosage: 1 SHOT?EVERY 2 WEEKS
     Dates: start: 20080101, end: 20131101

REACTIONS (2)
  - Deep vein thrombosis [None]
  - Hypercoagulation [None]
